FAERS Safety Report 24361586 (Version 1)
Quarter: 2024Q3

REPORT INFORMATION
  Report Type: Other
  Country: FR (occurrence: FR)
  Receive Date: 20240925
  Receipt Date: 20240925
  Transmission Date: 20241017
  Serious: Yes (Hospitalization, Other)
  Sender: APPCO PHARMA
  Company Number: FR-Appco Pharma LLC-2162023

PATIENT
  Age: 24 Year
  Sex: Male

DRUGS (2)
  1. ACETAZOLAMIDE [Suspect]
     Active Substance: ACETAZOLAMIDE
     Indication: Ophthalmic herpes simplex
  2. VALACYCLOVIR [Concomitant]
     Active Substance: VALACYCLOVIR HYDROCHLORIDE

REACTIONS (3)
  - Sickle cell anaemia with crisis [Recovered/Resolved]
  - Arterial occlusive disease [Recovered/Resolved]
  - Retinopathy [Recovered/Resolved]
